FAERS Safety Report 10266307 (Version 2)
Quarter: 2014Q2

REPORT INFORMATION
  Report Type: Spontaneous
  Country: FR (occurrence: FR)
  Receive Date: 20140627
  Receipt Date: 20140627
  Transmission Date: 20141212
  Serious: Yes (Other)
  Sender: FDA-Public Use
  Company Number: FR-IPSEN BIOPHARMACEUTICALS, INC.-2014-2681

PATIENT
  Age: 61 Year
  Sex: Female
  Weight: 85 kg

DRUGS (1)
  1. SOMATULINE L.P. 120MG [Suspect]
     Indication: ACROMEGALY
     Dosage: 120 MG
     Route: 065
     Dates: start: 2013

REACTIONS (2)
  - Drug administration error [Unknown]
  - Product quality issue [Unknown]
